FAERS Safety Report 11429867 (Version 1)
Quarter: 2015Q3

REPORT INFORMATION
  Report Type: Spontaneous
  Country: US (occurrence: US)
  Receive Date: 20150828
  Receipt Date: 20150828
  Transmission Date: 20151125
  Serious: No
  Sender: FDA-Public Use
  Company Number: US-ROCHE-1174719

PATIENT
  Sex: Female

DRUGS (6)
  1. PEGASYS [Suspect]
     Active Substance: PEGINTERFERON ALFA-2A
     Indication: CHRONIC HEPATITIS C
     Route: 058
     Dates: start: 20121209
  2. MELOXICAM. [Concomitant]
     Active Substance: MELOXICAM
  3. ZANAFLEX [Concomitant]
     Active Substance: TIZANIDINE HYDROCHLORIDE
  4. TELAPREVIR [Suspect]
     Active Substance: TELAPREVIR
     Indication: CHRONIC HEPATITIS C
     Route: 065
     Dates: start: 20121209
  5. NORCO [Concomitant]
     Active Substance: ACETAMINOPHEN\HYDROCODONE BITARTRATE
  6. RIBASPHERE RIBAPAK [Suspect]
     Active Substance: RIBAVIRIN
     Indication: CHRONIC HEPATITIS C
     Dosage: DIVIDED DOSES
     Route: 048
     Dates: start: 20121209

REACTIONS (18)
  - Haemorrhoids [Unknown]
  - Nausea [Unknown]
  - Bradyphrenia [Unknown]
  - Back pain [Unknown]
  - Alopecia [Unknown]
  - Vaginal haemorrhage [Unknown]
  - Fatigue [Unknown]
  - Weight decreased [Unknown]
  - Haemoglobin abnormal [Unknown]
  - Cough [Unknown]
  - Skin exfoliation [Unknown]
  - Depression [Unknown]
  - Anorectal discomfort [Unknown]
  - Decreased appetite [Unknown]
  - Pruritus [Unknown]
  - Vomiting [Unknown]
  - Ovarian cyst [Unknown]
  - Sinusitis [Unknown]
